FAERS Safety Report 6738336-1 (Version None)
Quarter: 2010Q2

REPORT INFORMATION
  Report Type: 
  Country: None (occurrence: None)
  Receive Date: 20100520
  Receipt Date: 20100505
  Transmission Date: 20101027
  Serious: Yes (Death)
  Sender: FDA-Public Use
  Company Number: 584914

PATIENT

DRUGS (6)
  1. CARBOPLATIN [Suspect]
     Indication: NEOPLASM
     Dosage: 500MG/M2
  2. ETOPOSIDE [Suspect]
     Indication: NEOPLASM
     Dosage: 250MG/M2,
  3. GRANULOCYTE-COLONY STIMULATING FACTOR (G-CSF) [Concomitant]
  4. ACYCLOVIR [Concomitant]
  5. FLUCONAZOLE [Concomitant]
  6. PENTAMIDINE ISETHIONATE [Concomitant]

REACTIONS (12)
  - ACUTE RESPIRATORY DISTRESS SYNDROME [None]
  - COLITIS [None]
  - HAEMATOTOXICITY [None]
  - HERPES ZOSTER [None]
  - MUCOSAL INFLAMMATION [None]
  - MULTI-ORGAN FAILURE [None]
  - MYELODYSPLASTIC SYNDROME [None]
  - NEUTROPENIA [None]
  - PLATELET COUNT DECREASED [None]
  - PNEUMONIA [None]
  - SEPSIS [None]
  - URINARY TRACT INFECTION [None]
